FAERS Safety Report 20650213 (Version 2)
Quarter: 2022Q2

REPORT INFORMATION
  Report Type: Spontaneous
  Country: GB (occurrence: GB)
  Receive Date: 20220329
  Receipt Date: 20220401
  Transmission Date: 20220721
  Serious: Yes (Death, Life-Threatening, Hospitalization)
  Sender: FDA-Public Use
  Company Number: GB-NOVARTISPH-NVSC2022GB070681

PATIENT
  Age: 61 Year
  Sex: Male
  Weight: 94 kg

DRUGS (2)
  1. LUTATHERA [Suspect]
     Active Substance: LUTETIUM OXODOTREOTIDE LU-177
     Indication: Neuroendocrine tumour
     Dosage: 7210 MBQ, ONCE/SINGLE
     Route: 042
     Dates: start: 20220322, end: 20220322
  2. NETSPOT [Suspect]
     Active Substance: DOTATATE GALLIUM GA-68
     Indication: Product used for unknown indication
     Dosage: UNK
     Route: 065

REACTIONS (6)
  - Cardiac arrest [Fatal]
  - Infection [Fatal]
  - Acute kidney injury [Unknown]
  - Arrhythmia [Unknown]
  - White blood cell count increased [Unknown]
  - Product contamination [Unknown]

NARRATIVE: CASE EVENT DATE: 20220322
